FAERS Safety Report 20791038 (Version 4)
Quarter: 2022Q3

REPORT INFORMATION
  Report Type: Spontaneous
  Country: US (occurrence: US)
  Receive Date: 20220505
  Receipt Date: 20220811
  Transmission Date: 20221026
  Serious: Yes (Hospitalization, Other)
  Sender: FDA-Public Use
  Company Number: US-BIOVITRUM-2022US01529

PATIENT
  Age: 69 Year
  Sex: Female

DRUGS (1)
  1. KINERET [Suspect]
     Active Substance: ANAKINRA
     Indication: Monoclonal gammopathy
     Dosage: 100MG/0.67ML
     Dates: start: 20190424

REACTIONS (4)
  - Endometrial cancer [Unknown]
  - Platelet count increased [Unknown]
  - Needle issue [Unknown]
  - Off label use [Unknown]

NARRATIVE: CASE EVENT DATE: 20190424
